FAERS Safety Report 20737008 (Version 1)
Quarter: 2022Q2

REPORT INFORMATION
  Report Type: Spontaneous
  Country: US (occurrence: US)
  Receive Date: 20220421
  Receipt Date: 20220421
  Transmission Date: 20220721
  Serious: No
  Sender: FDA-Public Use
  Company Number: US-PFIZER INC-202101333967

PATIENT
  Age: 76 Year
  Sex: Female
  Weight: 65.77 kg

DRUGS (2)
  1. CELEBREX [Suspect]
     Active Substance: CELECOXIB
     Indication: Phlebitis
     Dosage: 200 MG, DAILY  (200MG A DAY)
     Dates: start: 202109
  2. CELEBREX [Suspect]
     Active Substance: CELECOXIB
     Indication: Cellulitis

REACTIONS (2)
  - Off label use [Unknown]
  - Abdominal discomfort [Not Recovered/Not Resolved]
